FAERS Safety Report 6811029-8 (Version None)
Quarter: 2010Q2

REPORT INFORMATION
  Report Type: 
  Country: None (occurrence: None)
  Receive Date: 20100630
  Receipt Date: 20081124
  Transmission Date: 20101027
  Serious: No
  Sender: FDA-Public Use
  Company Number: US-PFIZER INC-2008099845

PATIENT
  Sex: Male
  Weight: 59.09 kg

DRUGS (1)
  1. NICOTROL [Suspect]
     Dates: start: 20081124, end: 20081124

REACTIONS (3)
  - HYPERSENSITIVITY [None]
  - MEDICATION ERROR [None]
  - THROAT IRRITATION [None]
